FAERS Safety Report 5379144-6 (Version None)
Quarter: 2007Q3

REPORT INFORMATION
  Report Type: 
  Country: None (occurrence: None)
  Receive Date: 20070705
  Receipt Date: 20070627
  Transmission Date: 20080115
  Serious: Yes (Disabling)
  Sender: FDA-Public Use
  Company Number: JP-BRISTOL-MYERS SQUIBB COMPANY-13830500

PATIENT
  Age: 49 Year
  Sex: Male

DRUGS (8)
  1. ZERIT [Suspect]
     Indication: HIV INFECTION
     Route: 048
     Dates: start: 19980305, end: 20040126
  2. EPIVIR [Suspect]
     Indication: HIV INFECTION
     Route: 048
     Dates: start: 19971101, end: 20051128
  3. VIRACEPT [Concomitant]
     Route: 048
     Dates: start: 19981224, end: 20001018
  4. NOVACT M [Concomitant]
     Dates: start: 19971101
  5. BAKTAR [Concomitant]
     Route: 048
     Dates: start: 19980910, end: 20000126
  6. CRIXIVAN [Concomitant]
     Route: 048
     Dates: start: 19971101, end: 19981223
  7. ZANTAC [Concomitant]
     Route: 048
     Dates: start: 19971101, end: 19981223
  8. URINORM [Concomitant]
     Route: 048
     Dates: start: 19971101, end: 19981223

REACTIONS (1)
  - DIABETES MELLITUS [None]
